FAERS Safety Report 6492901-8 (Version None)
Quarter: 2009Q4

REPORT INFORMATION
  Report Type: 
  Country: None (occurrence: None)
  Receive Date: 20091214
  Receipt Date: 20091203
  Transmission Date: 20100525
  Serious: Yes (Hospitalization)
  Sender: FDA-Public Use
  Company Number: PHHY2009MX53662

PATIENT
  Age: 38 Year
  Sex: Female

DRUGS (2)
  1. DIOVAN [Suspect]
     Indication: HYPERTENSION
     Dosage: 1 TABLET (160 MG) DAILY
     Route: 048
     Dates: start: 20051101
  2. TRITACE [Concomitant]
     Dosage: UNK

REACTIONS (2)
  - EYE OPERATION [None]
  - RETINAL DETACHMENT [None]
